FAERS Safety Report 10329396 (Version 2)
Quarter: 2014Q3

REPORT INFORMATION
  Report Type: Report from Study
  Country: US (occurrence: US)
  Receive Date: 20140721
  Receipt Date: 20140805
  Transmission Date: 20150326
  Serious: Yes (Disabling, Other)
  Sender: FDA-Public Use
  Company Number: PHEH2014US014432

PATIENT
  Age: 51 Year
  Sex: Female
  Weight: 75.8 kg

DRUGS (4)
  1. GABAPENTIN. [Concomitant]
     Active Substance: GABAPENTIN
     Indication: NEURALGIA
     Dosage: 600 MG, Q6H
     Route: 048
  2. GILENYA [Suspect]
     Active Substance: FINGOLIMOD HYDROCHLORIDE
     Indication: MULTIPLE SCLEROSIS
     Dosage: 0.5 MG, QD
     Route: 048
     Dates: start: 20110922, end: 20131216
  3. OXYBUTYNIN [Concomitant]
     Active Substance: OXYBUTYNIN
     Dosage: 5 MG, Q12H
     Route: 048
  4. GILENYA [Suspect]
     Active Substance: FINGOLIMOD HYDROCHLORIDE
     Dosage: 0.5 MG, QD
     Route: 048
     Dates: start: 20140619

REACTIONS (5)
  - Faecal incontinence [Unknown]
  - Cognitive disorder [Unknown]
  - Fatigue [Unknown]
  - Adenocarcinoma of colon [Recovered/Resolved with Sequelae]
  - Change of bowel habit [Unknown]

NARRATIVE: CASE EVENT DATE: 201311
